FAERS Safety Report 7301041-7 (Version None)
Quarter: 2011Q1

REPORT INFORMATION
  Report Type: 
  Country: None (occurrence: None)
  Receive Date: 20110218
  Receipt Date: 20110208
  Transmission Date: 20110831
  Serious: Yes (Hospitalization)
  Sender: FDA-Public Use
  Company Number: FR-NOVOPROD-323160

PATIENT
  Age: 54 Year
  Sex: Male

DRUGS (13)
  1. TAHOR [Concomitant]
     Dosage: 40 MG, BID
  2. ACTOS [Suspect]
     Indication: TYPE 2 DIABETES MELLITUS
     Dosage: 15 MG, QD
     Route: 048
  3. ASPIRIN [Concomitant]
     Dosage: 160 MG, QD
  4. VICTOZA [Suspect]
     Dosage: 1.2 MG, QD
     Route: 058
     Dates: start: 20100501, end: 20110117
  5. AMLODIPINE [Suspect]
     Indication: HYPERTENSION
     Dosage: 10 MG, QD
     Route: 048
  6. TRAMADOL HCL [Suspect]
     Indication: PAIN
     Dosage: 2 DF, QD
     Route: 048
  7. VICTOZA [Suspect]
     Indication: TYPE 2 DIABETES MELLITUS
     Dosage: 0.6 MG, QD
     Route: 058
     Dates: start: 20100515, end: 20100501
  8. VICTOZA [Suspect]
     Dosage: 1.8 MG, QD
     Route: 058
     Dates: start: 20110118
  9. BISOPROLOL FUMARATE [Suspect]
     Indication: HYPERTENSION
     Dosage: 20 MG, QD
     Route: 048
  10. RAMIPRIL [Suspect]
     Indication: HYPERTENSION
     Dosage: 10 MG, QD
     Route: 048
  11. GLUCOPHAGE [Suspect]
     Indication: TYPE 2 DIABETES MELLITUS
     Dosage: 1000 MG, TID
     Route: 048
  12. VASTAREL [Suspect]
     Indication: HYPERTENSION
     Dosage: 35 MG, BID
     Route: 048
  13. IKOREL [Concomitant]
     Dosage: 20 MG, QD

REACTIONS (4)
  - MALAISE [None]
  - FALL [None]
  - VISUAL IMPAIRMENT [None]
  - MUSCULAR WEAKNESS [None]
